FAERS Safety Report 14640293 (Version 1)
Quarter: 2018Q1

REPORT INFORMATION
  Report Type: Spontaneous
  Country: DE (occurrence: DE)
  Receive Date: 20180315
  Receipt Date: 20180315
  Transmission Date: 20180509
  Serious: Yes (Other)
  Sender: FDA-Public Use
  Company Number: PHHY2018DE041470

PATIENT
  Age: 35 Year
  Sex: Male
  Weight: 63 kg

DRUGS (3)
  1. MEDIKINET [Suspect]
     Active Substance: METHYLPHENIDATE
     Dosage: 40 MG, QD
     Route: 065
  2. FLUOXETINE [Suspect]
     Active Substance: FLUOXETINE HYDROCHLORIDE
     Indication: DEPRESSION
     Dosage: 20 MG, QD
     Route: 065
  3. MEDIKINET [Suspect]
     Active Substance: METHYLPHENIDATE
     Indication: ATTENTION DEFICIT/HYPERACTIVITY DISORDER
     Dosage: 10 MG, TID (10 MG UP TO 3 TIMES PER DAY)
     Route: 065

REACTIONS (7)
  - Psychopathic personality [Recovered/Resolved]
  - Depersonalisation/derealisation disorder [Recovered/Resolved]
  - Social avoidant behaviour [Recovered/Resolved]
  - Malaise [Unknown]
  - Tension [Recovered/Resolved]
  - Adverse drug reaction [Unknown]
  - Anxiety [Recovered/Resolved]
